FAERS Safety Report 15390337 (Version 1)
Quarter: 2018Q3

REPORT INFORMATION
  Report Type: Spontaneous
  Country: US (occurrence: US)
  Receive Date: 20180908
  Receipt Date: 20180908
  Transmission Date: 20181010
  Serious: Yes (Other)
  Sender: FDA-Public Use
  Company Number: None

PATIENT
  Age: 59 Year
  Sex: Female
  Weight: 76.5 kg

DRUGS (9)
  1. TYMLOS [Suspect]
     Active Substance: ABALOPARATIDE
     Indication: OSTEOPOROSIS
     Dosage: ?          OTHER STRENGTH:MCG;QUANTITY:80 INJECTION(S);?
     Route: 058
     Dates: start: 20180716, end: 20180907
  2. VITAMIN A [Concomitant]
     Active Substance: VITAMIN A
  3. MAGNESIUM [Concomitant]
     Active Substance: MAGNESIUM
  4. VITAMIN D3 [Concomitant]
     Active Substance: CHOLECALCIFEROL
  5. AREDS VITAMINS FOR EYES [Concomitant]
  6. ONE A DAY VITAMINS WITH IRON [Concomitant]
  7. VITAMIN B12 [Concomitant]
     Active Substance: CYANOCOBALAMIN
  8. EDARBI [Concomitant]
     Active Substance: AZILSARTAN KAMEDOXOMIL
  9. PROBIOTICS [Concomitant]
     Active Substance: PROBIOTICS NOS

REACTIONS (5)
  - Neck pain [None]
  - Heart rate increased [None]
  - Pain in jaw [None]
  - Headache [None]
  - Burning sensation [None]

NARRATIVE: CASE EVENT DATE: 20180906
